FAERS Safety Report 8711203 (Version 2)
Quarter: 2012Q4

REPORT INFORMATION
  Report Type: 
  Country: US (occurrence: US)
  Receive Date: 20120807
  Receipt Date: 20120926
  Transmission Date: 20130627
  Serious: Yes (Hospitalization)
  Sender: FDA-Public Use
  Company Number: US-PFIZER INC-2012188465

PATIENT

DRUGS (2)
  1. CELEBREX [Suspect]
     Dosage: UNK
  2. BETAPACE [Interacting]
     Dosage: UNK

REACTIONS (2)
  - Cardiac flutter [Unknown]
  - Drug interaction [Unknown]
